FAERS Safety Report 6538267-6 (Version None)
Quarter: 2010Q1

REPORT INFORMATION
  Report Type: 
  Country: None (occurrence: None)
  Receive Date: 20100112
  Receipt Date: 20100112
  Transmission Date: 20100710
  Serious: Yes (Life-Threatening, Hospitalization)
  Sender: FDA-Public Use
  Company Number: None

PATIENT
  Sex: Female
  Weight: 67 kg

DRUGS (5)
  1. REVLIMID [Suspect]
     Indication: AMYLOIDOSIS
  2. REVLIMID [Suspect]
     Indication: PULMONARY SARCOIDOSIS
  3. MIDODRINE HYDROCHLORIDE [Concomitant]
  4. PREDNISONE [Concomitant]
  5. LEVOTHYROXINE SODIUM [Concomitant]

REACTIONS (5)
  - AMYLOIDOSIS [None]
  - HYPOTENSION [None]
  - PULMONARY EMBOLISM [None]
  - PULMONARY SARCOIDOSIS [None]
  - SYNCOPE [None]
